FAERS Safety Report 8401390-5 (Version None)
Quarter: 2012Q2

REPORT INFORMATION
  Report Type: 
  Country: None (occurrence: None)
  Receive Date: 20120601
  Receipt Date: 20120522
  Transmission Date: 20120825
  Serious: Yes (Hospitalization)
  Sender: FDA-Public Use
  Company Number: JP-JNJFOC-20120305353

PATIENT
  Sex: Male
  Weight: 44 kg

DRUGS (5)
  1. REMICADE [Suspect]
     Indication: ERYTHRODERMIC PSORIASIS
     Route: 042
     Dates: start: 20110623
  2. ARICEPT ODT [Concomitant]
     Route: 048
  3. ALLEGRA [Concomitant]
     Route: 048
  4. ISONIAZID [Concomitant]
     Route: 048
  5. REMICADE [Suspect]
     Dosage: 3RD DOSE
     Route: 042
     Dates: start: 20110804

REACTIONS (1)
  - POLYMYOSITIS [None]
